FAERS Safety Report 4949500-6 (Version None)
Quarter: 2006Q1

REPORT INFORMATION
  Report Type: 
  Country: None (occurrence: None)
  Receive Date: 20060321
  Receipt Date: 20051215
  Transmission Date: 20060701
  Serious: Yes (Other)
  Sender: FDA-Public Use
  Company Number: US-NOVOPROD-249371

PATIENT
  Age: 61 Year
  Sex: Male
  Weight: 100 kg

DRUGS (6)
  1. NOVOLOG [Suspect]
     Indication: INSULIN-REQUIRING TYPE II DIABETES MELLITUS
     Dosage: SLIDING SCALE TID, APPROXIMATELY 15 IU TOTAL
     Route: 058
     Dates: start: 20030101
  2. LANTUS [Concomitant]
     Indication: INSULIN-REQUIRING TYPE II DIABETES MELLITUS
     Route: 058
  3. ACTOS [Concomitant]
     Indication: INSULIN-REQUIRING TYPE II DIABETES MELLITUS
  4. METFORMIN [Concomitant]
     Indication: INSULIN-REQUIRING TYPE II DIABETES MELLITUS
     Dosage: UNKNOWN
     Route: 048
  5. INDERAL LA [Concomitant]
     Indication: HYPERTENSION
     Dosage: UNKNOWN
     Route: 048
  6. COZAAR [Concomitant]
     Indication: HYPERTENSION
     Dosage: UNKNOWN

REACTIONS (1)
  - RETINAL HAEMORRHAGE [None]
